FAERS Safety Report 18136102 (Version 3)
Quarter: 2020Q3

REPORT INFORMATION
  Report Type: Report from Study
  Country: CN (occurrence: CN)
  Receive Date: 20200811
  Receipt Date: 20200909
  Transmission Date: 20201103
  Serious: Yes (Hospitalization)
  Sender: FDA-Public Use
  Company Number: CN-GE HEALTHCARE LIFE SCIENCES-2020OBU003364

PATIENT

DRUGS (7)
  1. VISIPAQUE [Suspect]
     Active Substance: IODIXANOL
     Indication: ACUTE MYOCARDIAL INFARCTION
     Dosage: 110 ML, SINGLE
     Route: 042
     Dates: start: 20191028, end: 20191028
  2. VISIPAQUE [Suspect]
     Active Substance: IODIXANOL
     Indication: ANGIOCARDIOGRAM
  3. VISIPAQUE [Suspect]
     Active Substance: IODIXANOL
     Indication: CORONARY ARTERIAL STENT INSERTION
  4. VISIPAQUE [Suspect]
     Active Substance: IODIXANOL
     Indication: PERCUTANEOUS CORONARY INTERVENTION
  5. CLOPIDOGREL [Concomitant]
     Active Substance: CLOPIDOGREL BISULFATE
     Indication: ACUTE MYOCARDIAL INFARCTION
     Dosage: 300 MG, SINGLE
     Route: 048
     Dates: start: 20191028, end: 20191028
  6. ATORVASTATIN [Concomitant]
     Active Substance: ATORVASTATIN
     Indication: ACUTE MYOCARDIAL INFARCTION
     Dosage: 20 MG, QD
     Route: 048
     Dates: start: 20191028
  7. ASPIRIN [ACETYLSALICYLIC ACID] [Concomitant]
     Active Substance: ASPIRIN
     Indication: ACUTE MYOCARDIAL INFARCTION
     Dosage: 300 MG, SINGLE
     Route: 048
     Dates: start: 20191028, end: 20191028

REACTIONS (1)
  - Left ventricular failure [Not Recovered/Not Resolved]

NARRATIVE: CASE EVENT DATE: 20191103
